FAERS Safety Report 14504943 (Version 1)
Quarter: 2018Q1

REPORT INFORMATION
  Report Type: Spontaneous
  Country: US (occurrence: US)
  Receive Date: 20180208
  Receipt Date: 20180208
  Transmission Date: 20180509
  Serious: No
  Sender: FDA-Public Use
  Company Number: US-JNJFOC-20171218592

PATIENT
  Age: 85 Year
  Sex: Male

DRUGS (11)
  1. COQ10 [Concomitant]
     Active Substance: UBIDECARENONE
  2. ELIQUIS [Concomitant]
     Active Substance: APIXABAN
  3. LEVEMIR [Concomitant]
     Active Substance: INSULIN DETEMIR
  4. CYANOCOBALAMIN. [Concomitant]
     Active Substance: CYANOCOBALAMIN
  5. BENAZEPRIL [Concomitant]
     Active Substance: BENAZEPRIL HYDROCHLORIDE
  6. IMBRUVICA [Suspect]
     Active Substance: IBRUTINIB
     Indication: CHRONIC LYMPHOCYTIC LEUKAEMIA
     Route: 065
     Dates: start: 20170419
  7. ASCORBIC ACID. [Concomitant]
     Active Substance: ASCORBIC ACID
  8. BISOPROLOL [Concomitant]
     Active Substance: BISOPROLOL
  9. VITAMIN B6 [Concomitant]
     Active Substance: PYRIDOXINE HYDROCHLORIDE
  10. ICAPS [Concomitant]
     Active Substance: MINERALS\VITAMINS
  11. IRON [Concomitant]
     Active Substance: IRON

REACTIONS (4)
  - Incorrect dose administered [Unknown]
  - Vision blurred [Unknown]
  - Off label use [Unknown]
  - Nodule [Unknown]

NARRATIVE: CASE EVENT DATE: 20170419
